FAERS Safety Report 6468499-7 (Version None)
Quarter: 2009Q4

REPORT INFORMATION
  Report Type: 
  Country: None (occurrence: None)
  Receive Date: 20091203
  Receipt Date: 20091125
  Transmission Date: 20100525
  Serious: Yes (Hospitalization)
  Sender: FDA-Public Use
  Company Number: AU-ASTRAZENECA-2009SE28619

PATIENT
  Age: 25361 Day
  Sex: Male

DRUGS (3)
  1. ROSUVASTATIN [Suspect]
     Indication: METABOLIC DISORDER
     Route: 048
     Dates: start: 20080825, end: 20080916
  2. CLOPIDOGREL [Concomitant]
     Indication: ACUTE MYOCARDIAL INFARCTION
  3. RAMIPRIL [Concomitant]
     Indication: ESSENTIAL HYPERTENSION

REACTIONS (1)
  - THROMBOCYTOPENIA [None]
